FAERS Safety Report 6396464-7 (Version None)
Quarter: 2009Q4

REPORT INFORMATION
  Report Type: 
  Country: None (occurrence: None)
  Receive Date: 20091012
  Receipt Date: 20091002
  Transmission Date: 20100525
  Serious: Yes (Hospitalization)
  Sender: FDA-Public Use
  Company Number: FR-ROCHE-660207

PATIENT
  Sex: Female

DRUGS (1)
  1. XELODA [Suspect]
     Indication: ADENOCARCINOMA
     Route: 048
     Dates: start: 20090526, end: 20090623

REACTIONS (2)
  - ABDOMINAL PAIN [None]
  - VULVAL ULCERATION [None]
